FAERS Safety Report 6543526-7 (Version None)
Quarter: 2010Q1

REPORT INFORMATION
  Report Type: 
  Country: None (occurrence: None)
  Receive Date: 20100120
  Receipt Date: 20100114
  Transmission Date: 20100710
  Serious: Yes (Death)
  Sender: FDA-Public Use
  Company Number: B0627331A

PATIENT
  Sex: Female
  Weight: 80 kg

DRUGS (1)
  1. ELTROMBOPAG [Suspect]
     Dosage: 50MG PER DAY
     Route: 048
     Dates: start: 20090714, end: 20090812

REACTIONS (5)
  - BACK PAIN [None]
  - DRUG INEFFECTIVE [None]
  - HAEMORRHAGE [None]
  - PLATELET COUNT DECREASED [None]
  - RETROPERITONEAL HAEMORRHAGE [None]
